FAERS Safety Report 20137988 (Version 1)
Quarter: 2021Q4

REPORT INFORMATION
  Report Type: Report from Study
  Country: US (occurrence: None)
  Receive Date: 20211202
  Receipt Date: 20211202
  Transmission Date: 20220303
  Serious: Yes (Other)
  Sender: FDA-Public Use
  Company Number: US-ROCHE-2118690

PATIENT
  Age: 57 Year

DRUGS (5)
  1. ATEZOLIZUMAB [Suspect]
     Active Substance: ATEZOLIZUMAB
     Indication: Colorectal cancer metastatic
     Dosage: LAST DOSE PRIOR TO SAE: 18/JAN/2018
     Route: 042
     Dates: start: 20171130
  2. CAPECITABINE [Suspect]
     Active Substance: CAPECITABINE
     Indication: Colorectal cancer metastatic
     Dosage: LAST DOSE PRIOR TO SAE: 31/JAN/2018?DOSE ADMINISTERED: 42000 MG
     Route: 048
     Dates: start: 20171130
  3. BEVACIZUMAB [Suspect]
     Active Substance: BEVACIZUMAB
     Indication: Colorectal cancer metastatic
     Dosage: LAST DOSE PRIOR TO SAE: 18/JAN/2018?DOSE ADMINISTERED: 490 MG
     Route: 042
     Dates: start: 20171130
  4. SUMATRIPTAN [Concomitant]
     Active Substance: SUMATRIPTAN
  5. PHENERGAN [Concomitant]
     Active Substance: PROMETHAZINE HYDROCHLORIDE

REACTIONS (2)
  - Pulmonary embolism [Not Recovered/Not Resolved]
  - Embolism [Unknown]

NARRATIVE: CASE EVENT DATE: 20180205
